FAERS Safety Report 14454490 (Version 1)
Quarter: 2018Q1

REPORT INFORMATION
  Report Type: Spontaneous
  Country: US (occurrence: US)
  Receive Date: 20180128
  Receipt Date: 20180128
  Transmission Date: 20180509
  Serious: Yes (Other)
  Sender: FDA-Public Use
  Company Number: None

PATIENT
  Age: 61 Year
  Sex: Female
  Weight: 76.5 kg

DRUGS (2)
  1. HYDROCORTISONE. [Suspect]
     Active Substance: HYDROCORTISONE
     Indication: ECZEMA
     Route: 061
  2. MULTI VITAMINS [Concomitant]
     Active Substance: VITAMINS

REACTIONS (4)
  - Application site burn [None]
  - Application site rash [None]
  - Rash generalised [None]
  - Eczema [None]

NARRATIVE: CASE EVENT DATE: 20150815
